FAERS Safety Report 6041747-3 (Version None)
Quarter: 2009Q1

REPORT INFORMATION
  Report Type: 
  Country: None (occurrence: None)
  Receive Date: 20090116
  Receipt Date: 20090107
  Transmission Date: 20090719
  Serious: Yes (Other)
  Sender: FDA-Public Use
  Company Number: JP-PFIZER INC-2008100696

PATIENT

DRUGS (5)
  1. SUNITINIB MALATE [Suspect]
     Indication: RENAL CELL CARCINOMA
     Dosage: 50 MG, 1X/DAY
     Route: 048
     Dates: start: 20080911
  2. OXYCONTIN [Concomitant]
     Dosage: UNK
     Route: 048
  3. PURSENNID [Concomitant]
     Route: 048
  4. MAGNESIUM OXIDE [Concomitant]
     Route: 048
  5. MOBIC [Concomitant]
     Route: 048

REACTIONS (2)
  - LUNG DISORDER [None]
  - PLEURAL EFFUSION [None]
